FAERS Safety Report 4324579-3 (Version None)
Quarter: 2004Q1

REPORT INFORMATION
  Report Type: 
  Country: None (occurrence: None)
  Receive Date: 20040323
  Receipt Date: 20040308
  Transmission Date: 20041129
  Serious: No
  Sender: FDA-Public Use
  Company Number: 2004-BP-01330NB

PATIENT
  Age: 70 Year
  Sex: Male

DRUGS (9)
  1. MOBIC [Suspect]
     Indication: RHEUMATOID ARTHRITIS
     Dosage: 10 MG (NR) PO
     Route: 048
     Dates: start: 20040106, end: 20040212
  2. RHEUMATREX         (METHOTREXATE SODIUM) (KA) [Concomitant]
  3. FOLIAMIN           (FOLIC ACID) [Concomitant]
  4. PREDNISOLONE [Concomitant]
  5. GLIMICRON (GLICLAZIDE) (TA) [Concomitant]
  6. BASEN (VOGLIBOSE) (TA) [Concomitant]
  7. ALFAROL (ALFACALCIDOL) (KA) [Concomitant]
  8. CALCIUM LACTATE         (CALCIUM LACTATE) (PL) [Concomitant]
  9. ACTONEL (TA) [Concomitant]

REACTIONS (1)
  - CYSTITIS HAEMORRHAGIC [None]
